FAERS Safety Report 4710172-7 (Version None)
Quarter: 2005Q3

REPORT INFORMATION
  Report Type: 
  Country: None (occurrence: None)
  Receive Date: 20050707
  Receipt Date: 20050627
  Transmission Date: 20060218
  Serious: Yes (Hospitalization, Other)
  Sender: FDA-Public Use
  Company Number: 2005077451

PATIENT
  Sex: Male
  Weight: 81.6475 kg

DRUGS (1)
  1. AZULFIDINE [Suspect]
     Indication: ILL-DEFINED DISORDER
     Dosage: 500 MG ORAL
     Route: 048
     Dates: end: 20050401

REACTIONS (2)
  - BRONCHITIS [None]
  - MYOCARDIAL INFARCTION [None]
